FAERS Safety Report 13960340 (Version 3)
Quarter: 2018Q1

REPORT INFORMATION
  Report Type: Spontaneous
  Country: US (occurrence: US)
  Receive Date: 20170912
  Receipt Date: 20180129
  Transmission Date: 20180508
  Serious: Yes (Life-Threatening, Hospitalization)
  Sender: FDA-Public Use
  Company Number: US-ELI_LILLY_AND_COMPANY-US201709002291

PATIENT
  Age: 74 Year
  Sex: Male
  Weight: 74.42 kg

DRUGS (7)
  1. EPACADOSTAT [Suspect]
     Active Substance: EPACADOSTAT
     Indication: CLINICAL TRIAL PARTICIPANT
  2. TRAZODONE [Concomitant]
     Active Substance: TRAZODONE HYDROCHLORIDE
     Indication: PRODUCT USED FOR UNKNOWN INDICATION
     Route: 065
  3. CIALIS [Suspect]
     Active Substance: TADALAFIL
     Indication: ERECTILE DYSFUNCTION
     Dosage: UNK
     Route: 065
     Dates: start: 20170317, end: 20170626
  4. NIVOLUMAB [Suspect]
     Active Substance: NIVOLUMAB
     Indication: CLINICAL TRIAL PARTICIPANT
     Dosage: 240 MG, 2/M
     Route: 042
     Dates: start: 20161107, end: 20170515
  5. EPACADOSTAT [Suspect]
     Active Substance: EPACADOSTAT
     Indication: MALIGNANT MELANOMA
     Dosage: 300 MG, BID
     Route: 048
     Dates: start: 20161107, end: 20170515
  6. NIVOLUMAB [Suspect]
     Active Substance: NIVOLUMAB
     Indication: MALIGNANT MELANOMA
  7. IRON SULFATE [Concomitant]
     Active Substance: FERROUS SULFATE ANHYDROUS
     Indication: PRODUCT USED FOR UNKNOWN INDICATION
     Dosage: UNK
     Dates: start: 20170502

REACTIONS (1)
  - Immune thrombocytopenic purpura [Recovered/Resolved]
